FAERS Safety Report 19536689 (Version 1)
Quarter: 2021Q3

REPORT INFORMATION
  Report Type: Spontaneous
  Country: US (occurrence: US)
  Receive Date: 20210713
  Receipt Date: 20210713
  Transmission Date: 20211014
  Serious: Yes (Hospitalization)
  Sender: FDA-Public Use
  Company Number: None

PATIENT
  Age: 22 Month
  Sex: Male

DRUGS (9)
  1. CLINDAMYCIN. [Concomitant]
     Active Substance: CLINDAMYCIN
  2. LEVETIRACETA [Concomitant]
     Active Substance: LEVETIRACETAM
  3. OXCARBAZEPIN [Concomitant]
     Active Substance: OXCARBAZEPINE
  4. SENNA [Concomitant]
     Active Substance: SENNA LEAF\SENNOSIDES\SENNOSIDES A AND B
  5. VIGABATRIN 500MG PWD [Suspect]
     Active Substance: VIGABATRIN
     Indication: EPILEPSY
     Dosage: OTHER DOSE:16ML (800MG) ;OTHER ROUTE:VIA G?TUBE??START 30?JUL?2021?
  6. PEDIA?LAX [Concomitant]
     Active Substance: SODIUM PHOSPHATE, DIBASIC, HEPTAHYDRATE\SODIUM PHOSPHATE, MONOBASIC
  7. POLYETH GLYC [Concomitant]
     Active Substance: POLYETHYLENE GLYCOLS
  8. PATADAY [Concomitant]
     Active Substance: OLOPATADINE HYDROCHLORIDE
  9. FIRST?OMEPRA SUS [Concomitant]

REACTIONS (3)
  - Influenza [None]
  - COVID-19 [None]
  - Rhinitis [None]

NARRATIVE: CASE EVENT DATE: 20210709
